FAERS Safety Report 24923691 (Version 2)
Quarter: 2025Q1

REPORT INFORMATION
  Report Type: Spontaneous
  Country: US (occurrence: US)
  Receive Date: 20250204
  Receipt Date: 20250211
  Transmission Date: 20250409
  Serious: Yes (Other)
  Sender: ROCHE
  Company Number: US-ROCHE-10000190373

PATIENT
  Age: 72 Year
  Sex: Female

DRUGS (13)
  1. HERCEPTIN [Suspect]
     Active Substance: TRASTUZUMAB
     Indication: Hormone receptor positive HER2 negative breast cancer
     Route: 065
     Dates: start: 20230203
  2. HERCEPTIN [Suspect]
     Active Substance: TRASTUZUMAB
     Indication: Metastases to central nervous system
     Route: 065
     Dates: start: 20230608
  3. HERCEPTIN [Suspect]
     Active Substance: TRASTUZUMAB
     Indication: Cardiac failure
  4. PERJETA [Suspect]
     Active Substance: PERTUZUMAB
     Indication: Hormone receptor positive HER2 negative breast cancer
     Route: 065
     Dates: start: 20230608
  5. XELODA [Suspect]
     Active Substance: CAPECITABINE
     Indication: Hormone receptor positive HER2 negative breast cancer
     Route: 065
     Dates: start: 202310
  6. XELODA [Suspect]
     Active Substance: CAPECITABINE
     Indication: Metastases to central nervous system
  7. TAXOL [Suspect]
     Active Substance: PACLITAXEL
     Indication: Hormone receptor positive HER2 negative breast cancer
     Route: 065
     Dates: start: 20230210, end: 20230817
  8. TAXOL [Suspect]
     Active Substance: PACLITAXEL
     Route: 065
     Dates: start: 20230203
  9. TUKYSA [Suspect]
     Active Substance: TUCATINIB
     Indication: Hormone receptor positive HER2 negative breast cancer
     Route: 048
  10. TUKYSA [Suspect]
     Active Substance: TUCATINIB
     Indication: Metastases to central nervous system
  11. AREDIA [Suspect]
     Active Substance: PAMIDRONATE DISODIUM
     Indication: Hormone receptor positive HER2 negative breast cancer
     Route: 065
     Dates: end: 20230124
  12. ZOMETA [Concomitant]
     Active Substance: ZOLEDRONIC ACID
     Indication: Product used for unknown indication
  13. KEPPRA [Concomitant]
     Active Substance: LEVETIRACETAM

REACTIONS (13)
  - Ammonia increased [Unknown]
  - Paraesthesia [Unknown]
  - Scalp haematoma [Unknown]
  - Ejection fraction decreased [Unknown]
  - Spinal compression fracture [Unknown]
  - Bone cancer [Unknown]
  - Metastases to liver [Unknown]
  - Osteomyelitis [Unknown]
  - Arteriosclerosis [Unknown]
  - Myelopathy [Unknown]
  - Metastases to bone [Unknown]
  - Vascular calcification [Unknown]
  - Hepatic cyst [Unknown]
